FAERS Safety Report 16903551 (Version 1)
Quarter: 2019Q4

REPORT INFORMATION
  Report Type: Spontaneous
  Country: US (occurrence: US)
  Receive Date: 20190817
  Receipt Date: 20190817
  Transmission Date: 20200122
  Serious: Yes (Hospitalization)
  Sender: FDA-Public Use
  Company Number: None

PATIENT
  Age: 16 Year
  Sex: Male
  Weight: 71 kg

DRUGS (3)
  1. DOXORUBICIN HYDROCHLORIDE. [Suspect]
     Active Substance: DOXORUBICIN HYDROCHLORIDE
     Dates: end: 20070428
  2. ETOPOSIDE (VP-16) [Suspect]
     Active Substance: ETOPOSIDE
     Dates: end: 20070618
  3. CISPLATIN. [Suspect]
     Active Substance: CISPLATIN
     Dates: end: 20070428

REACTIONS (5)
  - Thrombocytopenia [None]
  - Blast cells present [None]
  - Allogenic bone marrow transplantation therapy [None]
  - Neutropenia [None]
  - Acute myeloid leukaemia [None]

NARRATIVE: CASE EVENT DATE: 20090423
